FAERS Safety Report 7159906-5 (Version None)
Quarter: 2010Q4

REPORT INFORMATION
  Report Type: 
  Country: None (occurrence: None)
  Receive Date: 20101214
  Receipt Date: 20101202
  Transmission Date: 20110411
  Serious: Yes (Other)
  Sender: FDA-Public Use
  Company Number: PHHY2010CA52782

PATIENT
  Sex: Male

DRUGS (6)
  1. EXJADE [Suspect]
     Indication: ANAEMIA HAEMOLYTIC AUTOIMMUNE
     Dosage: 1000 MG, QD
     Route: 048
     Dates: start: 20100713, end: 20100801
  2. EXJADE [Suspect]
     Indication: CHRONIC LYMPHOCYTIC LEUKAEMIA
  3. DEXAMETHASONE [Concomitant]
  4. FOLIC ACID [Concomitant]
  5. GABAPENTIN [Concomitant]
  6. ACYCLOVIR SODIUM [Concomitant]

REACTIONS (8)
  - DRUG INEFFECTIVE [None]
  - FEBRILE NEUTROPENIA [None]
  - HERPES ZOSTER [None]
  - INFECTION [None]
  - LIVER DISORDER [None]
  - LUNG INFECTION [None]
  - RASH [None]
  - SWELLING [None]
